FAERS Safety Report 10419953 (Version 2)
Quarter: 2014Q3

REPORT INFORMATION
  Report Type: Spontaneous
  Country: US (occurrence: None)
  Receive Date: 20140828
  Receipt Date: 20140908
  Transmission Date: 20150326
  Serious: Yes (Other)
  Sender: FDA-Public Use
  Company Number: 2014-US-010447

PATIENT
  Age: 25 Year
  Sex: Female

DRUGS (2)
  1. ETHANOL (ETHANOL) [Suspect]
     Active Substance: ALCOHOL
     Indication: PRODUCT USED FOR UNKNOWN INDICATION
  2. XYREM [Suspect]
     Active Substance: SODIUM OXYBATE
     Indication: NARCOLEPSY
     Dosage: UNKNOWN DOSE

REACTIONS (8)
  - Apnoea [None]
  - Urinary incontinence [None]
  - Aggression [None]
  - Head injury [None]
  - Coma [None]
  - Blood alcohol increased [None]
  - Tachycardia [None]
  - Wrong technique in drug usage process [None]
